FAERS Safety Report 9132776 (Version 1)
Quarter: 2013Q1

REPORT INFORMATION
  Report Type: Spontaneous
  Country: IT (occurrence: IT)
  Receive Date: 20130107
  Receipt Date: 20130107
  Transmission Date: 20140127
  Serious: Yes (Hospitalization)
  Sender: FDA-Public Use
  Company Number: IT-TEVA-378925ISR

PATIENT
  Age: 75 Year
  Sex: Female

DRUGS (5)
  1. METFORMINA [Suspect]
     Indication: TYPE 2 DIABETES MELLITUS
     Dosage: 2000 MILLIGRAM DAILY;
     Route: 048
     Dates: start: 20080101, end: 20120619
  2. NEBILOX [Concomitant]
     Indication: HYPERTENSION
  3. BLOPRESID [Concomitant]
     Dosage: CANDESARTAN CILEXETIL 16MG/HYDROCHLOROTHIAZIDE 12.5 MG
  4. TAVOR [Concomitant]
     Indication: DEPRESSION
  5. LANSOPRAZOLO [Concomitant]
     Indication: PROPHYLAXIS AGAINST GASTROINTESTINAL ULCER

REACTIONS (1)
  - Hypoglycaemic coma [Recovering/Resolving]
